FAERS Safety Report 8457084-3 (Version None)
Quarter: 2012Q2

REPORT INFORMATION
  Report Type: 
  Country: None (occurrence: None)
  Receive Date: 20120615
  Receipt Date: 20120601
  Transmission Date: 20120825
  Serious: Yes (Other)
  Sender: FDA-Public Use
  Company Number: 1206-286

PATIENT
  Sex: Male

DRUGS (1)
  1. EYLEA [Suspect]
     Dates: start: 20120130, end: 20120312

REACTIONS (2)
  - VISUAL ACUITY REDUCED [None]
  - RETINAL HAEMORRHAGE [None]
